FAERS Safety Report 20076331 (Version 1)
Quarter: 2021Q4

REPORT INFORMATION
  Report Type: Spontaneous
  Country: US (occurrence: US)
  Receive Date: 20211116
  Receipt Date: 20211116
  Transmission Date: 20220303
  Serious: No
  Sender: FDA-Public Use
  Company Number: US-AMGEN-USASP2021174675

PATIENT
  Age: 67 Year
  Sex: Female

DRUGS (1)
  1. PROLIA [Suspect]
     Active Substance: DENOSUMAB
     Indication: Bone disorder
     Dosage: 50 MILLIGRAM
     Route: 065
     Dates: start: 2021

REACTIONS (2)
  - Trismus [Unknown]
  - Off label use [Unknown]

NARRATIVE: CASE EVENT DATE: 20210101
